FAERS Safety Report 21564011 (Version 1)
Quarter: 2022Q4

REPORT INFORMATION
  Report Type: Other
  Country: BG (occurrence: BG)
  Receive Date: 20221108
  Receipt Date: 20221108
  Transmission Date: 20230113
  Serious: Yes (Hospitalization)
  Sender: FDA-Public Use
  Company Number: BG-BoehringerIngelheim-2022-BI-200460

PATIENT
  Age: 51 Year
  Sex: Male

DRUGS (2)
  1. ALTEPLASE [Suspect]
     Active Substance: ALTEPLASE
     Indication: Ischaemic stroke
     Route: 042
  2. ALTEPLASE [Suspect]
     Active Substance: ALTEPLASE
     Route: 013

REACTIONS (2)
  - Drug ineffective [Unknown]
  - No adverse event [Unknown]
